FAERS Safety Report 6856029-7 (Version None)
Quarter: 2010Q3

REPORT INFORMATION
  Report Type: 
  Country: None (occurrence: None)
  Receive Date: 20100719
  Receipt Date: 20100709
  Transmission Date: 20110219
  Serious: Yes (Other)
  Sender: FDA-Public Use
  Company Number: SK-BAXTER-2010BH018367

PATIENT
  Sex: Female

DRUGS (8)
  1. GAMMAGARD LIQUID [Suspect]
     Indication: CHRONIC LYMPHOCYTIC LEUKAEMIA
     Route: 065
     Dates: start: 20100603, end: 20100603
  2. GAMMAGARD LIQUID [Suspect]
     Indication: HYPOGAMMAGLOBULINAEMIA
     Route: 065
     Dates: start: 20100603, end: 20100603
  3. GAMMAGARD LIQUID [Suspect]
     Indication: SECONDARY IMMUNODEFICIENCY
     Route: 065
     Dates: start: 20100603, end: 20100603
  4. GAMMAGARD LIQUID [Suspect]
     Route: 065
     Dates: start: 20100101
  5. GAMMAGARD LIQUID [Suspect]
     Route: 065
     Dates: start: 20100101
  6. GAMMAGARD LIQUID [Suspect]
     Route: 065
     Dates: start: 20100101
  7. MILURIT [Concomitant]
  8. HYDROCORTISONE [Concomitant]
     Indication: ALLERGY PROPHYLAXIS
     Route: 042
     Dates: start: 20100101, end: 20100603

REACTIONS (2)
  - CHILLS [None]
  - CIRCULATORY COLLAPSE [None]
